FAERS Safety Report 7051654-5 (Version None)
Quarter: 2010Q4

REPORT INFORMATION
  Report Type: 
  Country: None (occurrence: None)
  Receive Date: 20101012
  Receipt Date: 20100929
  Transmission Date: 20110411
  Serious: Yes (Death)
  Sender: FDA-Public Use
  Company Number: UTC-001496

PATIENT

DRUGS (3)
  1. REMODULIN [Suspect]
     Indication: RIGHT VENTRICULAR FAILURE
     Dosage: (1 IN 1 MIN),SUBCUTANEOUS
     Route: 058
  2. SILDENAFIL CITRATE [Concomitant]
  3. BOSENTAN (BOSENTAN) [Concomitant]

REACTIONS (1)
  - RIGHT VENTRICULAR FAILURE [None]
